FAERS Safety Report 11490139 (Version 3)
Quarter: 2015Q4

REPORT INFORMATION
  Report Type: Report from Study
  Country: KE (occurrence: KE)
  Receive Date: 20150910
  Receipt Date: 20151105
  Transmission Date: 20160304
  Serious: Yes (Death)
  Sender: FDA-Public Use
  Company Number: PHHY2015KE094026

PATIENT
  Age: 38 Year
  Sex: Male
  Weight: 65 kg

DRUGS (3)
  1. AUGMENTIN [Concomitant]
     Active Substance: AMOXICILLIN\CLAVULANATE POTASSIUM
     Indication: SEPSIS
     Dosage: 3.6 G, UNK
     Route: 042
     Dates: start: 20150701, end: 20150705
  2. GLIVEC [Suspect]
     Active Substance: IMATINIB MESYLATE
     Indication: CHRONIC MYELOID LEUKAEMIA
     Dosage: 800 MG, UNK
     Route: 048
     Dates: start: 20150420, end: 20150704
  3. TRAMODA [Concomitant]
     Active Substance: TRAMADOL HYDROCHLORIDE
     Indication: PAIN
     Dosage: 150 MG, UNK
     Route: 042
     Dates: start: 20150701, end: 20150705

REACTIONS (4)
  - Malignant neoplasm progression [Fatal]
  - Asthenia [Fatal]
  - Chronic myeloid leukaemia [Fatal]
  - Treatment failure [Unknown]

NARRATIVE: CASE EVENT DATE: 20150701
